FAERS Safety Report 21446761 (Version 1)
Quarter: 2022Q4

REPORT INFORMATION
  Report Type: Spontaneous
  Country: US (occurrence: None)
  Receive Date: 20221011
  Receipt Date: 20221011
  Transmission Date: 20230112
  Serious: Yes (unspecified)
  Sender: FDA-Public Use
  Company Number: None

PATIENT
  Age: 76 Year
  Sex: Male

DRUGS (2)
  1. TICAGRELOR [Suspect]
     Active Substance: TICAGRELOR
     Indication: Vascular device user
     Dosage: 60 MG BID PO
     Route: 048
     Dates: start: 20200327, end: 20210311
  2. TICAGRELOR [Suspect]
     Active Substance: TICAGRELOR
     Indication: Cerebrovascular accident

REACTIONS (2)
  - Haemorrhage intracranial [None]
  - Haemorrhage [None]

NARRATIVE: CASE EVENT DATE: 20220226
